FAERS Safety Report 7679449-X (Version None)
Quarter: 2011Q3

REPORT INFORMATION
  Report Type: 
  Country: None (occurrence: None)
  Receive Date: 20110812
  Receipt Date: 20110805
  Transmission Date: 20111222
  Serious: Yes (Death)
  Sender: FDA-Public Use
  Company Number: JP-B.I. PHARMACEUTICALS,INC./RIDGEFIELD-2011-DE-04326GD

PATIENT
  Age: 73 Year
  Sex: Female
  Weight: 30 kg

DRUGS (3)
  1. TIOTROPIUM [Suspect]
     Indication: RESPIRATORY FAILURE
  2. AMLODIPINE BESYLATE [Concomitant]
     Indication: RESPIRATORY FAILURE
     Dosage: 200 MG
  3. THEOPHYLLINE [Concomitant]
     Indication: RESPIRATORY FAILURE

REACTIONS (2)
  - SUDDEN DEATH [None]
  - ARRHYTHMIA [None]
